FAERS Safety Report 6012693-6 (Version None)
Quarter: 2008Q4

REPORT INFORMATION
  Report Type: 
  Country: None (occurrence: None)
  Receive Date: 20081218
  Receipt Date: 20081202
  Transmission Date: 20090506
  Serious: Yes (Death, Other)
  Sender: FDA-Public Use
  Company Number: US-AMGEN-QUU316150

PATIENT
  Sex: Male

DRUGS (10)
  1. ENBREL [Suspect]
     Indication: PSORIASIS
     Route: 058
     Dates: start: 19970101, end: 20080201
  2. ENBREL [Suspect]
     Indication: PSORIATIC ARTHROPATHY
  3. HUMIRA [Concomitant]
     Indication: PSORIASIS
     Route: 058
     Dates: start: 20071108, end: 20071201
  4. HUMIRA [Concomitant]
     Indication: PSORIATIC ARTHROPATHY
  5. HUMULIN 70/30 [Concomitant]
  6. LESCOL [Concomitant]
  7. TRICOR [Concomitant]
  8. ZYRTEC [Concomitant]
  9. MIXTARD HUMAN 70/30 [Concomitant]
  10. ESOMEPRAZOLE MAGNESIUM [Concomitant]
     Route: 048

REACTIONS (2)
  - CREUTZFELDT-JAKOB DISEASE [None]
  - PNEUMONIA [None]
